FAERS Safety Report 9956372 (Version 1)
Quarter: 2014Q1

REPORT INFORMATION
  Report Type: Spontaneous
  Country: GB (occurrence: GB)
  Receive Date: 20140304
  Receipt Date: 20140304
  Transmission Date: 20141002
  Serious: Yes (Other)
  Sender: FDA-Public Use
  Company Number: PHHY2014GB023203

PATIENT
  Sex: Female

DRUGS (10)
  1. METOCLOPRAMIDE [Suspect]
  2. DIAZEPAM [Suspect]
  3. LORAZEPAM [Suspect]
  4. OMEPRAZOLE [Suspect]
     Route: 048
  5. DEXAMETHASONE [Suspect]
  6. IBUPROFEN [Suspect]
  7. PARACETAMOL [Suspect]
  8. PREDNISOLONE [Suspect]
  9. MULTIVITAMIN//VITAMINS NOS [Suspect]
  10. ZOMIG [Suspect]
     Indication: MIGRAINE
     Dosage: 2.5 MG
     Route: 048

REACTIONS (2)
  - Breast cancer [Unknown]
  - Drug interaction [Unknown]
